FAERS Safety Report 19768936 (Version 2)
Quarter: 2021Q3

REPORT INFORMATION
  Report Type: Spontaneous
  Country: IT (occurrence: IT)
  Receive Date: 20210831
  Receipt Date: 20210916
  Transmission Date: 20211014
  Serious: Yes (Other)
  Sender: FDA-Public Use
  Company Number: NVSC2021IT189947

PATIENT
  Age: 55 Year
  Sex: Male

DRUGS (2)
  1. VOTRIENT [Suspect]
     Active Substance: PAZOPANIB HYDROCHLORIDE
     Indication: CHONDROSARCOMA
     Dosage: 400 MG, QD  (ABOUT 2 MONTHS)
     Route: 065
     Dates: start: 20210615
  2. VOTRIENT [Suspect]
     Active Substance: PAZOPANIB HYDROCHLORIDE
     Indication: METASTASES TO LUNG

REACTIONS (4)
  - Blood creatinine increased [Unknown]
  - Retinal detachment [Recovered/Resolved]
  - Vitreous detachment [Unknown]
  - Retinal injury [Recovered/Resolved]

NARRATIVE: CASE EVENT DATE: 20210801
